FAERS Safety Report 11222952 (Version 4)
Quarter: 2015Q3

REPORT INFORMATION
  Report Type: Report from Study
  Country: US (occurrence: US)
  Receive Date: 20150626
  Receipt Date: 20150727
  Transmission Date: 20151125
  Serious: Yes (Other)
  Sender: FDA-Public Use
  Company Number: US-BAXALTA-2015BAX032656

PATIENT
  Sex: Female

DRUGS (2)
  1. HUMAN NORMAL IMMUNOGLOBULIN; HYALURONIDASE [Suspect]
     Active Substance: HUMAN IMMUNOGLOBULIN G\HYALURONIDASE RECOMBINANT HUMAN
     Indication: PRIMARY IMMUNODEFICIENCY SYNDROME
     Dosage: UNK
     Route: 058
  2. HUMAN NORMAL IMMUNOGLOBULIN; HYALURONIDASE [Suspect]
     Active Substance: HUMAN IMMUNOGLOBULIN G\HYALURONIDASE RECOMBINANT HUMAN
     Indication: IMMUNODEFICIENCY COMMON VARIABLE
     Dosage: UNK
     Route: 065
     Dates: start: 20150709, end: 20150709

REACTIONS (5)
  - Fatigue [Not Recovered/Not Resolved]
  - Infusion site erythema [Not Recovered/Not Resolved]
  - Pain in extremity [Unknown]
  - Upper respiratory tract infection [Unknown]
  - Arthralgia [Not Recovered/Not Resolved]
